FAERS Safety Report 12912657 (Version 1)
Quarter: 2016Q4

REPORT INFORMATION
  Report Type: Report from Study
  Country: US (occurrence: US)
  Receive Date: 20161104
  Receipt Date: 20161104
  Transmission Date: 20170207
  Serious: Yes (Other)
  Sender: FDA-Public Use
  Company Number: US-JNJFOC-20161103941

PATIENT
  Sex: Male

DRUGS (3)
  1. IMBRUVICA [Suspect]
     Active Substance: IBRUTINIB
     Indication: B-CELL LYMPHOMA
     Route: 048
     Dates: start: 20161011
  2. OMEGA III [Concomitant]
  3. RAPAFLO [Concomitant]
     Active Substance: SILODOSIN

REACTIONS (2)
  - White blood cell count abnormal [Unknown]
  - Platelet count abnormal [Recovered/Resolved]
